FAERS Safety Report 5128186-4 (Version None)
Quarter: 2006Q4

REPORT INFORMATION
  Report Type: 
  Country: None (occurrence: None)
  Receive Date: 20061011
  Receipt Date: 20061003
  Transmission Date: 20070319
  Serious: Yes (Other)
  Sender: FDA-Public Use
  Company Number: 2006120125

PATIENT
  Sex: Female

DRUGS (1)
  1. UNISOM [Suspect]
     Dosage: 5 ^PILLS^ ONCE; ORAL
     Route: 048
     Dates: start: 20061003, end: 20061003

REACTIONS (2)
  - DISORIENTATION [None]
  - SOMNOLENCE [None]
